FAERS Safety Report 9845454 (Version 1)
Quarter: 2014Q1

REPORT INFORMATION
  Report Type: Spontaneous
  Country: US (occurrence: None)
  Receive Date: 20140123
  Receipt Date: 20140123
  Transmission Date: 20141002
  Serious: Yes (Other)
  Sender: FDA-Public Use
  Company Number: None

PATIENT
  Age: 57 Year
  Sex: Female
  Weight: 74.84 kg

DRUGS (1)
  1. FLUOXETINE [Suspect]
     Indication: DEPRESSION
     Dosage: 1  ONCE DAILY  TAKEN BY MOUTH
     Route: 048

REACTIONS (9)
  - Mood swings [None]
  - Crying [None]
  - Paraesthesia [None]
  - Paraesthesia [None]
  - Lethargy [None]
  - Palpitations [None]
  - Decreased appetite [None]
  - Headache [None]
  - Product substitution issue [None]
